FAERS Safety Report 21738291 (Version 2)
Quarter: 2022Q4

REPORT INFORMATION
  Report Type: Spontaneous
  Country: US (occurrence: US)
  Receive Date: 20221216
  Receipt Date: 20221223
  Transmission Date: 20230113
  Serious: Yes (Other)
  Sender: FDA-Public Use
  Company Number: US-BAXTER-2022BAX030654

PATIENT
  Sex: Male

DRUGS (6)
  1. DIANEAL PD-2 WITH DEXTROSE [Suspect]
     Active Substance: CALCIUM CHLORIDE\DEXTROSE\MAGNESIUM CHLORIDE\SODIUM CHLORIDE\SODIUM LACTATE
     Indication: End stage renal disease
     Dosage: UNK
     Route: 033
     Dates: start: 202204
  2. DIANEAL PD-2 WITH DEXTROSE [Suspect]
     Active Substance: CALCIUM CHLORIDE\DEXTROSE\MAGNESIUM CHLORIDE\SODIUM CHLORIDE\SODIUM LACTATE
     Dosage: UNK (DOSE RE-INTRODUCED)
     Route: 033
     Dates: start: 20220913
  3. DIANEAL FOR PERITONEAL DIALYSIS [Suspect]
     Active Substance: ANHYDROUS DEXTROSE\CALCIUM CHLORIDE\MAGNESIUM CHLORIDE\SODIUM CHLORIDE\SODIUM LACTATE
     Indication: End stage renal disease
     Dosage: UNK
     Route: 033
     Dates: start: 202204
  4. DIANEAL FOR PERITONEAL DIALYSIS [Suspect]
     Active Substance: ANHYDROUS DEXTROSE\CALCIUM CHLORIDE\MAGNESIUM CHLORIDE\SODIUM CHLORIDE\SODIUM LACTATE
     Dosage: UNK (DOSE RE-INTRODUCED)
     Route: 033
     Dates: start: 20220913
  5. EXTRANEAL [Suspect]
     Active Substance: CALCIUM CHLORIDE\ICODEXTRIN\MAGNESIUM CHLORIDE\SODIUM CHLORIDE\SODIUM LACTATE
     Indication: End stage renal disease
     Dosage: UNK
     Route: 033
     Dates: start: 202204
  6. EXTRANEAL [Suspect]
     Active Substance: CALCIUM CHLORIDE\ICODEXTRIN\MAGNESIUM CHLORIDE\SODIUM CHLORIDE\SODIUM LACTATE
     Dosage: UNK (DOSE RE-INTRODUCED)
     Route: 033
     Dates: start: 20220913

REACTIONS (4)
  - Noninfectious peritonitis [Recovering/Resolving]
  - Peritoneal cloudy effluent [Recovered/Resolved]
  - Peritoneal effluent leukocyte count increased [Recovered/Resolved]
  - Inguinal hernia [Unknown]

NARRATIVE: CASE EVENT DATE: 20220101
